FAERS Safety Report 11697458 (Version 2)
Quarter: 2015Q4

REPORT INFORMATION
  Report Type: Spontaneous
  Country: US (occurrence: US)
  Receive Date: 20151104
  Receipt Date: 20151209
  Transmission Date: 20160304
  Serious: Yes (Other)
  Sender: FDA-Public Use
  Company Number: US-PFIZER INC-2015349121

PATIENT
  Age: 61 Year
  Sex: Female
  Weight: 83.45 kg

DRUGS (2)
  1. IBRANCE [Suspect]
     Active Substance: PALBOCICLIB
     Indication: BREAST CANCER
     Dosage: 125 MG, CYCLIC (DAY 1-21 Q 28 DAYS)
     Route: 048
     Dates: start: 20150925
  2. IBRANCE [Suspect]
     Active Substance: PALBOCICLIB
     Dosage: UNK

REACTIONS (8)
  - Stoma site haemorrhage [Unknown]
  - Abdominal pain upper [Unknown]
  - Abdominal distension [Unknown]
  - Alopecia [Unknown]
  - Blood count abnormal [Unknown]
  - Fatigue [Unknown]
  - Depression suicidal [Unknown]
  - Excoriation [Unknown]
